FAERS Safety Report 24697876 (Version 2)
Quarter: 2025Q1

REPORT INFORMATION
  Report Type: Spontaneous
  Country: US (occurrence: US)
  Receive Date: 20241204
  Receipt Date: 20250103
  Transmission Date: 20250408
  Serious: No
  Sender: SANOFI AVENTIS
  Company Number: US-SA-2024SA357059

PATIENT
  Age: 68 Year
  Sex: Female

DRUGS (16)
  1. DUPIXENT [Suspect]
     Active Substance: DUPILUMAB
     Indication: Asthma
     Dosage: 300 MG, QOW
     Route: 058
     Dates: start: 20241113
  2. ALISKIREN HEMIFUMARATE [Concomitant]
     Active Substance: ALISKIREN HEMIFUMARATE
  3. AMOXICILLIN [Concomitant]
     Active Substance: AMOXICILLIN
  4. ATENOLOL [Concomitant]
     Active Substance: ATENOLOL
  5. CLOPIDOGREL [Concomitant]
     Active Substance: CLOPIDOGREL BISULFATE
  6. GABAPENTIN [Concomitant]
     Active Substance: GABAPENTIN
  7. LATANOPROST [Concomitant]
     Active Substance: LATANOPROST
  8. LEVOCETIRIZINE [Concomitant]
     Active Substance: LEVOCETIRIZINE
  9. MONTELUKAST [Concomitant]
     Active Substance: MONTELUKAST
  10. PREDNISONE [Concomitant]
     Active Substance: PREDNISONE
  11. SERTRALINE HYDROCHLORIDE [Concomitant]
     Active Substance: SERTRALINE HYDROCHLORIDE
  12. SYMBICORT [Concomitant]
     Active Substance: BUDESONIDE\FORMOTEROL FUMARATE DIHYDRATE
  13. CLOPIDOGREL [Concomitant]
     Active Substance: CLOPIDOGREL BISULFATE
  14. ALBUTEROL SULFATE [Concomitant]
     Active Substance: ALBUTEROL SULFATE
  15. CEFDINIR [Concomitant]
     Active Substance: CEFDINIR
  16. PANTOPRAZOLE [Concomitant]
     Active Substance: PANTOPRAZOLE

REACTIONS (16)
  - Dyspnoea [Not Recovered/Not Resolved]
  - Sleep disorder due to a general medical condition [Not Recovered/Not Resolved]
  - Decreased appetite [Not Recovered/Not Resolved]
  - Depression [Not Recovered/Not Resolved]
  - Feeling of despair [Not Recovered/Not Resolved]
  - Fatigue [Not Recovered/Not Resolved]
  - Asthenia [Not Recovered/Not Resolved]
  - Feeling abnormal [Not Recovered/Not Resolved]
  - Illness [Not Recovered/Not Resolved]
  - Loss of personal independence in daily activities [Not Recovered/Not Resolved]
  - Scratch [Not Recovered/Not Resolved]
  - Skin haemorrhage [Not Recovered/Not Resolved]
  - Bronchitis [Unknown]
  - Gastroenteritis viral [Unknown]
  - Chest discomfort [Unknown]
  - Intentional dose omission [Unknown]

NARRATIVE: CASE EVENT DATE: 20240101
